FAERS Safety Report 23472635 (Version 1)
Quarter: 2024Q1

REPORT INFORMATION
  Report Type: Spontaneous
  Country: CN (occurrence: CN)
  Receive Date: 20240202
  Receipt Date: 20240202
  Transmission Date: 20240409
  Serious: Yes (Life-Threatening)
  Sender: FDA-Public Use
  Company Number: CN-Merck Healthcare KGaA-2024005467

PATIENT
  Age: 67 Year
  Sex: Male

DRUGS (5)
  1. ERBITUX [Suspect]
     Active Substance: CETUXIMAB
     Indication: Tongue neoplasm malignant stage unspecified
     Dosage: 800 MG, UNK
     Route: 041
     Dates: start: 20240123, end: 20240123
  2. SODIUM CHLORIDE [Concomitant]
     Active Substance: SODIUM CHLORIDE
     Indication: Medication dilution
     Route: 041
     Dates: start: 20240123, end: 20240123
  3. NEDAPLATIN [Concomitant]
     Active Substance: NEDAPLATIN
     Indication: Tongue neoplasm malignant stage unspecified
     Dosage: 140 MG, UNK
     Dates: start: 20240118
  4. ALBUMIN HUMAN [Concomitant]
     Active Substance: ALBUMIN HUMAN
     Indication: Tongue neoplasm malignant stage unspecified
     Dosage: 400 MG, UNK
     Dates: start: 20240118
  5. PACLITAXEL [Concomitant]
     Active Substance: PACLITAXEL
     Indication: Tongue neoplasm malignant stage unspecified
     Dosage: 400 MG, UNK
     Dates: start: 20240118

REACTIONS (1)
  - Chills [Recovering/Resolving]

NARRATIVE: CASE EVENT DATE: 20240123
